FAERS Safety Report 4988413-0 (Version None)
Quarter: 2006Q2

REPORT INFORMATION
  Report Type: 
  Country: None (occurrence: None)
  Receive Date: 20060426
  Receipt Date: 20060413
  Transmission Date: 20061013
  Serious: Yes (Life-Threatening, Hospitalization)
  Sender: FDA-Public Use
  Company Number: 2006SP001388

PATIENT
  Age: 39 Year
  Sex: Female
  Weight: 78.0187 kg

DRUGS (1)
  1. XOPENEX [Suspect]
     Indication: ASTHMA
     Dosage: 1.25 MG/3ML; BID; INHALATION
     Route: 055
     Dates: start: 20051225

REACTIONS (4)
  - CARDIAC FAILURE CONGESTIVE [None]
  - DRUG INEFFECTIVE [None]
  - LOSS OF CONSCIOUSNESS [None]
  - MYOCARDIAL INFARCTION [None]
